FAERS Safety Report 25365940 (Version 1)
Quarter: 2025Q2

REPORT INFORMATION
  Report Type: Spontaneous
  Country: US (occurrence: US)
  Receive Date: 20250528
  Receipt Date: 20250528
  Transmission Date: 20250717
  Serious: No
  Sender: ROCHE
  Company Number: US-ROCHE-10000288838

PATIENT
  Sex: Female

DRUGS (14)
  1. XOLAIR PFS [Suspect]
     Active Substance: OMALIZUMAB
     Indication: Oesophageal achalasia
     Route: 058
     Dates: start: 202503
  2. XOLAIR PFS [Suspect]
     Active Substance: OMALIZUMAB
     Route: 058
     Dates: start: 202503
  3. ALKALOL SOL [Concomitant]
  4. ASHWAGANDHA CAP 120MG [Concomitant]
  5. BUDESONIDE SUS 32MCG/ACT [Concomitant]
  6. MULLEIN GARL SOL [Concomitant]
  7. TRIAMCINOLON AER 55MCG/AC [Concomitant]
  8. VITAMIN D2 [Concomitant]
     Active Substance: ERGOCALCIFEROL
  9. VITAMIN D3 CAP 50 MCG (200 [Concomitant]
  10. ALBUTEROL SU AER 108 (90 [Concomitant]
  11. FLONASE ALLE SUS 50MCG/AC [Concomitant]
  12. MULTI VITAMI TAB [Concomitant]
  13. OMEPRAZOLE CPD 40MG [Concomitant]
  14. TRELEGY ELLI AEP 100-62.5 [Concomitant]

REACTIONS (3)
  - Off label use [Unknown]
  - Oxygen saturation decreased [Not Recovered/Not Resolved]
  - Dyspnoea [Not Recovered/Not Resolved]
